FAERS Safety Report 6606601-4 (Version None)
Quarter: 2010Q1

REPORT INFORMATION
  Report Type: 
  Country: None (occurrence: None)
  Receive Date: 20100226
  Receipt Date: 20100114
  Transmission Date: 20100710
  Serious: Yes (Death, Hospitalization, Other)
  Sender: FDA-Public Use
  Company Number: PHEH2006US08727

PATIENT
  Sex: Female
  Weight: 66.213 kg

DRUGS (25)
  1. COMBIPATCH [Suspect]
     Indication: HORMONE REPLACEMENT THERAPY
     Route: 062
  2. VIVELLE [Suspect]
     Indication: MENOPAUSAL SYMPTOMS
     Dosage: 0.05 MG, UNK
     Dates: start: 20020601, end: 20020801
  3. PROVERA [Suspect]
     Indication: MENOPAUSAL SYMPTOMS
     Dosage: 5 MG, UNK
     Dates: start: 19971001, end: 19990601
  4. PREMPRO [Suspect]
     Indication: MENOPAUSAL SYMPTOMS
     Dosage: 0.625 MG, UNK
     Dates: start: 19990601, end: 20000701
  5. PREMARIN [Suspect]
     Indication: MENOPAUSAL SYMPTOMS
     Dosage: 0.625 MG, UNK
     Dates: start: 19971001, end: 19990601
  6. MEDROXYPROGESTERONE ACETATE [Suspect]
     Indication: MENOPAUSAL SYMPTOMS
     Dosage: 5 MG, UNK
     Dates: start: 19971001, end: 19990601
  7. TYKERB [Concomitant]
  8. XELODA [Concomitant]
  9. AREDIA [Concomitant]
     Dosage: 90MG/1L NORMAL SALINE
     Route: 042
  10. AUGMENTIN '125' [Concomitant]
     Dosage: 875MG PO BID X10 DAYS
     Dates: start: 20070724, end: 20070803
  11. ZOFRAN [Concomitant]
     Dosage: 4MG
  12. CELEXA [Concomitant]
  13. DURAGESIC-100 [Concomitant]
     Dosage: 100MG Q3DAYS
     Route: 062
  14. HYDROCODONE [Concomitant]
  15. COUMADIN [Concomitant]
  16. GEMZAR [Concomitant]
     Dosage: 1700MG
  17. DECADRON [Concomitant]
     Dosage: 4MG
     Route: 040
  18. OXYGEN [Concomitant]
     Dosage: 2 LPM VIA NC
     Route: 045
  19. EFFEXOR [Concomitant]
     Dosage: 75MG QD
     Route: 048
  20. ATIVAN [Concomitant]
     Dosage: 1MG BID PRN
     Route: 048
  21. AMBIEN [Concomitant]
  22. ZITHROMAX [Concomitant]
  23. PHENERGAN ^AVENTIS PHARMA^ [Concomitant]
  24. ZOMETA [Concomitant]
  25. NAVELBINE [Concomitant]

REACTIONS (28)
  - ANTIBIOTIC RESISTANT STAPHYLOCOCCUS TEST POSITIVE [None]
  - ANXIETY [None]
  - BIOPSY BREAST [None]
  - BONE PAIN [None]
  - BREAST CANCER METASTATIC [None]
  - BREAST PAIN [None]
  - DEPRESSION [None]
  - DIPLOPIA [None]
  - FATIGUE [None]
  - HIP FRACTURE [None]
  - MAMMOGRAM ABNORMAL [None]
  - MASTECTOMY [None]
  - METASTASES TO BONE [None]
  - METASTASES TO CENTRAL NERVOUS SYSTEM [None]
  - METASTASES TO SPINE [None]
  - NAUSEA [None]
  - NIPPLE DISORDER [None]
  - OPHTHALMOPLEGIA [None]
  - OXYGEN SATURATION DECREASED [None]
  - PLEURAL EFFUSION [None]
  - PNEUMONIA [None]
  - RADIATION NECROSIS [None]
  - SINUS CONGESTION [None]
  - SINUS HEADACHE [None]
  - TACHYCARDIA [None]
  - TOOTHACHE [None]
  - URINARY TRACT INFECTION [None]
  - VOMITING [None]
